FAERS Safety Report 17795086 (Version 1)
Quarter: 2020Q2

REPORT INFORMATION
  Report Type: Spontaneous
  Country: CN (occurrence: CN)
  Receive Date: 20200515
  Receipt Date: 20200515
  Transmission Date: 20200714
  Serious: Yes (Hospitalization)
  Sender: FDA-Public Use
  Company Number: CN-PFIZER INC-2020181360

PATIENT
  Age: 28 Year
  Sex: Female
  Weight: 60 kg

DRUGS (2)
  1. MISOPROSTOL. [Suspect]
     Active Substance: MISOPROSTOL
     Dosage: 3 TABLETS, 1X/DAY
     Route: 048
     Dates: start: 20200423, end: 20200423
  2. MISOPROSTOL. [Suspect]
     Active Substance: MISOPROSTOL
     Indication: ABORTION INDUCED
     Dosage: 2 TABLETS
     Route: 067
     Dates: start: 20200420

REACTIONS (9)
  - Body temperature increased [Recovering/Resolving]
  - Feeling cold [Recovering/Resolving]
  - Off label use [Unknown]
  - Product use in unapproved indication [Unknown]
  - Chills [Recovering/Resolving]
  - Incorrect route of product administration [Unknown]
  - Insulin resistance [Unknown]
  - Abortion missed [Unknown]
  - Pruritus [Recovering/Resolving]

NARRATIVE: CASE EVENT DATE: 20200420
